FAERS Safety Report 20165942 (Version 4)
Quarter: 2022Q1

REPORT INFORMATION
  Report Type: Spontaneous
  Country: JP (occurrence: JP)
  Receive Date: 20211209
  Receipt Date: 20220127
  Transmission Date: 20220424
  Serious: Yes (Death)
  Sender: FDA-Public Use
  Company Number: JP-PFIZER INC-202101723028

PATIENT
  Age: 85 Year
  Sex: Male
  Weight: 63 kg

DRUGS (12)
  1. AXITINIB [Suspect]
     Active Substance: AXITINIB
     Dosage: 10 MG, DAILY
     Dates: start: 20200225, end: 20200323
  2. AXITINIB [Suspect]
     Active Substance: AXITINIB
     Dosage: 6 MG, DAILY
     Dates: start: 20200324, end: 20200328
  3. AXITINIB [Suspect]
     Active Substance: AXITINIB
     Dosage: 4 MG, DAILY
     Dates: start: 20200408, end: 20200421
  4. AXITINIB [Suspect]
     Active Substance: AXITINIB
     Dosage: 6 MG, DAILY
     Dates: start: 20200422, end: 20200718
  5. AXITINIB [Suspect]
     Active Substance: AXITINIB
     Dosage: 6 MG, DAILY
     Dates: start: 20200729, end: 20200929
  6. AXITINIB [Suspect]
     Active Substance: AXITINIB
     Dosage: 6 MG, DAILY
     Dates: start: 20210113, end: 20210531
  7. AVELUMAB [Suspect]
     Active Substance: AVELUMAB
     Dosage: 10 MG/KG
     Dates: start: 20200225, end: 20200908
  8. BEZAFIBRATE [Concomitant]
     Active Substance: BEZAFIBRATE
  9. AZILSARTAN KAMEDOXOMIL [Concomitant]
     Active Substance: AZILSARTAN KAMEDOXOMIL
  10. PREDONINE [Concomitant]
     Active Substance: PREDNISOLONE
     Route: 048
  11. AMLODIPINE BESYLATE\AZILSARTAN [Concomitant]
     Active Substance: AMLODIPINE BESYLATE\AZILSARTAN
  12. ASPIRIN [Concomitant]
     Active Substance: ASPIRIN

REACTIONS (1)
  - Death [Fatal]

NARRATIVE: CASE EVENT DATE: 20210531
